FAERS Safety Report 7526561-1 (Version None)
Quarter: 2011Q2

REPORT INFORMATION
  Report Type: 
  Country: None (occurrence: None)
  Receive Date: 20110606
  Receipt Date: 20110524
  Transmission Date: 20111010
  Serious: Yes (Other)
  Sender: FDA-Public Use
  Company Number: US-ELI_LILLY_AND_COMPANY-US200909001234

PATIENT
  Sex: Female

DRUGS (2)
  1. FORTEO [Suspect]
     Indication: OSTEOPOROSIS
     Dosage: 20 UG, DAILY (1/D)
     Route: 058
     Dates: end: 20100601
  2. CALCIUM CARBONATE [Concomitant]

REACTIONS (13)
  - URINE ODOUR ABNORMAL [None]
  - JOINT SWELLING [None]
  - HEADACHE [None]
  - RHEUMATOID ARTHRITIS [None]
  - URINARY RETENTION [None]
  - MUSCULOSKELETAL STIFFNESS [None]
  - ROTATOR CUFF SYNDROME [None]
  - FALL [None]
  - BLADDER PROLAPSE [None]
  - COMPRESSION FRACTURE [None]
  - BRONCHOPNEUMONIA [None]
  - ARTHRALGIA [None]
  - KIDNEY INFECTION [None]
